FAERS Safety Report 13632723 (Version 1)
Quarter: 2017Q2

REPORT INFORMATION
  Report Type: Spontaneous
  Country: GB (occurrence: GB)
  Receive Date: 20170609
  Receipt Date: 20170609
  Transmission Date: 20170830
  Serious: Yes (Hospitalization, Other)
  Sender: FDA-Public Use
  Company Number: GB-MYLANLABS-2017M1033505

PATIENT

DRUGS (7)
  1. IBUPROFEN. [Concomitant]
     Active Substance: IBUPROFEN
  2. RISPERIDONE. [Concomitant]
     Active Substance: RISPERIDONE
  3. MEROPENEM. [Concomitant]
     Active Substance: MEROPENEM
     Indication: MENINGITIS MENINGOCOCCAL
  4. DIAZEPAM. [Concomitant]
     Active Substance: DIAZEPAM
  5. CARBAMAZEPINE. [Suspect]
     Active Substance: CARBAMAZEPINE
     Indication: MOOD SWINGS
     Route: 048
  6. PROCYCLIDINE [Concomitant]
     Active Substance: PROCYCLIDINE
  7. VENLAFAXINE HYDROCHLORIDE. [Concomitant]
     Active Substance: VENLAFAXINE HYDROCHLORIDE

REACTIONS (3)
  - Rash [Recovering/Resolving]
  - Stevens-Johnson syndrome [Recovering/Resolving]
  - Mucosal inflammation [Unknown]
